FAERS Safety Report 9440881 (Version 1)
Quarter: 2013Q3

REPORT INFORMATION
  Report Type: Spontaneous
  Country: US (occurrence: None)
  Receive Date: 20130801
  Receipt Date: 20130801
  Transmission Date: 20140515
  Serious: Yes (Hospitalization)
  Sender: FDA-Public Use
  Company Number: 2013GMK006338

PATIENT
  Age: 61 Year
  Sex: Female

DRUGS (5)
  1. LEVOFLOXACIN [Suspect]
     Indication: PRODUCT USED FOR UNKNOWN INDICATION
  2. FLUCONAZOLE (FLUCONAZOLE) [Concomitant]
  3. ACYCLOVIR /00587301/ (ACICLOVIR) [Concomitant]
  4. WARFARIN (WARFARIN) [Concomitant]
  5. VITAMINS NOS (VITAMINS NOS) [Concomitant]

REACTIONS (3)
  - Drug hypersensitivity [None]
  - Febrile neutropenia [None]
  - Pancytopenia [None]
